FAERS Safety Report 15660667 (Version 6)
Quarter: 2024Q2

REPORT INFORMATION
  Report Type: Report from Study
  Country: CA (occurrence: CA)
  Receive Date: 20181127
  Receipt Date: 20240525
  Transmission Date: 20240716
  Serious: Yes (Other)
  Sender: FDA-Public Use
  Company Number: CA-JNJFOC-20181130735

PATIENT
  Age: 31 Year
  Sex: Male
  Weight: 114 kg

DRUGS (5)
  1. STELARA [Suspect]
     Active Substance: USTEKINUMAB
     Indication: Colitis ulcerative
     Dosage: ON 29-JUN-2021, THE PATIENT RECEIVED 2ND STELARA INFUSION FOR DOSE OF 520 MG.
     Route: 042
     Dates: start: 20181119
  2. STELARA [Suspect]
     Active Substance: USTEKINUMAB
     Indication: Systemic lupus erythematosus
     Route: 058
     Dates: end: 20231030
  3. STELARA [Suspect]
     Active Substance: USTEKINUMAB
     Indication: Behcet^s syndrome
  4. STELARA [Suspect]
     Active Substance: USTEKINUMAB
     Indication: Perichondritis
  5. STELARA [Suspect]
     Active Substance: USTEKINUMAB
     Indication: Inflammatory bowel disease

REACTIONS (5)
  - Colitis ulcerative [Unknown]
  - Kidney infection [Unknown]
  - Optic neuritis [Not Recovered/Not Resolved]
  - Off label use [Unknown]
  - Product use in unapproved indication [Unknown]

NARRATIVE: CASE EVENT DATE: 20181119
